FAERS Safety Report 10868517 (Version 1)
Quarter: 2015Q1

REPORT INFORMATION
  Report Type: Spontaneous
  Country: FR (occurrence: FR)
  Receive Date: 20150225
  Receipt Date: 20150225
  Transmission Date: 20150721
  Serious: Yes (Hospitalization)
  Sender: FDA-Public Use
  Company Number: FR-ABBVIE-15P-056-1352481-00

PATIENT
  Age: 71 Year
  Sex: Male

DRUGS (10)
  1. JANUVIA [Suspect]
     Active Substance: SITAGLIPTIN PHOSPHATE
     Indication: TYPE 2 DIABETES MELLITUS
     Route: 048
     Dates: start: 20140220, end: 20140515
  2. PIROXICAM. [Suspect]
     Active Substance: PIROXICAM
     Indication: PRODUCT USED FOR UNKNOWN INDICATION
     Route: 030
     Dates: start: 20140423, end: 20140424
  3. AUGMENTIN [Suspect]
     Active Substance: AMOXICILLIN\CLAVULANATE POTASSIUM
     Indication: PRODUCT USED FOR UNKNOWN INDICATION
     Route: 048
     Dates: start: 20140509, end: 20140514
  4. IXPRIM [Suspect]
     Active Substance: ACETAMINOPHEN\TRAMADOL HYDROCHLORIDE
     Indication: PRODUCT USED FOR UNKNOWN INDICATION
     Route: 048
     Dates: start: 20140425
  5. LIPANTHYL [Suspect]
     Active Substance: FENOFIBRATE
     Indication: HYPERTRIGLYCERIDAEMIA
     Route: 048
     Dates: start: 20140220, end: 20140515
  6. DAFALGAN [Suspect]
     Active Substance: ACETAMINOPHEN
     Indication: PRODUCT USED FOR UNKNOWN INDICATION
     Route: 048
     Dates: start: 20140425
  7. PYOSTACINE [Suspect]
     Active Substance: PRISTINAMYCIN
     Indication: PRODUCT USED FOR UNKNOWN INDICATION
     Route: 048
     Dates: start: 20140427, end: 20140505
  8. TRAMADOL [Suspect]
     Active Substance: TRAMADOL
     Indication: PRODUCT USED FOR UNKNOWN INDICATION
     Route: 048
  9. ZELITREX [Suspect]
     Active Substance: VALACYCLOVIR HYDROCHLORIDE
     Indication: PRODUCT USED FOR UNKNOWN INDICATION
     Route: 048
     Dates: start: 20140425, end: 20140501
  10. LAMALINE [Suspect]
     Active Substance: ACETAMINOPHEN\CAFFEINE\OPIUM
     Indication: PRODUCT USED FOR UNKNOWN INDICATION
     Route: 048
     Dates: start: 20140425

REACTIONS (2)
  - Neutropenia [Recovering/Resolving]
  - Condition aggravated [Recovering/Resolving]

NARRATIVE: CASE EVENT DATE: 2014
